FAERS Safety Report 18572212 (Version 1)
Quarter: 2020Q4

REPORT INFORMATION
  Report Type: Spontaneous
  Country: US (occurrence: US)
  Receive Date: 20201202
  Receipt Date: 20201202
  Transmission Date: 20210114
  Serious: Yes (Hospitalization, Other)
  Sender: FDA-Public Use
  Company Number: US-PURDUE-USA-2020-0179215

PATIENT
  Age: 18 Year
  Sex: Female

DRUGS (6)
  1. OXYCODONE/ ACETAMINOPHEN TABLETS [Suspect]
     Active Substance: ACETAMINOPHEN\OXYCODONE HYDROCHLORIDE
     Indication: TONSILLECTOMY
     Dosage: UNK
     Route: 048
  2. SUBUTEX [Suspect]
     Active Substance: BUPRENORPHINE HYDROCHLORIDE
     Indication: PRODUCT USED FOR UNKNOWN INDICATION
     Dosage: UNK
     Route: 065
  3. XANAX [Suspect]
     Active Substance: ALPRAZOLAM
     Indication: ANXIETY
     Dosage: UNK
     Route: 065
  4. PERCOCET                           /00446701/ [Suspect]
     Active Substance: ACETAMINOPHEN\OXYCODONE HYDROCHLORIDE\OXYCODONE TEREPHTHALATE
     Indication: TONSILLECTOMY
     Dosage: UNK
     Route: 065
  5. HEROIN [Suspect]
     Active Substance: DIAMORPHINE
     Indication: PRODUCT USED FOR UNKNOWN INDICATION
     Dosage: UNK
     Route: 065
  6. GAMMA-HYDROXYBUTYRATE [Suspect]
     Active Substance: OXYBATE
     Indication: PRODUCT USED FOR UNKNOWN INDICATION
     Dosage: UNK
     Route: 065

REACTIONS (16)
  - Overdose [Unknown]
  - Exposure during pregnancy [Unknown]
  - Drug abuse [Unknown]
  - Nightmare [Unknown]
  - Aggression [Unknown]
  - Perinatal depression [Unknown]
  - Caesarean section [None]
  - Laboratory test abnormal [Unknown]
  - Gun shot wound [Unknown]
  - Joint injury [Unknown]
  - Drug dependence [Unknown]
  - Physical assault [Unknown]
  - Sexual abuse [Unknown]
  - Post-traumatic stress disorder [Unknown]
  - Stab wound [Unknown]
  - Anxiety [Unknown]
